FAERS Safety Report 16719658 (Version 1)
Quarter: 2019Q3

REPORT INFORMATION
  Report Type: Report from Study
  Country: None (occurrence: US)
  Receive Date: 20190820
  Receipt Date: 20190820
  Transmission Date: 20191005
  Serious: Yes (Hospitalization, Other)
  Sender: FDA-Public Use
  Company Number: US-ABBVIE-19K-163-2889312-00

PATIENT
  Age: 79 Year
  Sex: Female

DRUGS (1)
  1. HUMIRA [Suspect]
     Active Substance: ADALIMUMAB
     Indication: PSORIASIS
     Route: 058
     Dates: start: 20190323

REACTIONS (8)
  - Small intestine polyp [Recovered/Resolved]
  - Skin laceration [Recovering/Resolving]
  - Fall [Recovered/Resolved]
  - Skin laceration [Recovered/Resolved]
  - Anaemia [Recovering/Resolving]
  - Peripheral vascular disorder [Recovered/Resolved]
  - Fall [Recovering/Resolving]
  - Haematochezia [Unknown]

NARRATIVE: CASE EVENT DATE: 2019
